FAERS Safety Report 17123492 (Version 1)
Quarter: 2019Q4

REPORT INFORMATION
  Report Type: Spontaneous
  Country: US (occurrence: US)
  Receive Date: 20191206
  Receipt Date: 20191206
  Transmission Date: 20200122
  Serious: Yes (Other)
  Sender: FDA-Public Use
  Company Number: US-SIMILASAN CORPORATION-US-2019SIM000106

PATIENT

DRUGS (1)
  1. EAR WAX REMOVAL KIT (HOMEOPATHIC) [Suspect]
     Active Substance: HOMEOPATHICS
     Indication: PRODUCT USED FOR UNKNOWN INDICATION
     Dosage: NI/NI/
     Route: 001

REACTIONS (1)
  - Deafness unilateral [Unknown]
